FAERS Safety Report 5100698-9 (Version None)
Quarter: 2006Q3

REPORT INFORMATION
  Report Type: 
  Country: None (occurrence: None)
  Receive Date: 20060906
  Receipt Date: 20060823
  Transmission Date: 20061208
  Serious: Yes (Other)
  Sender: FDA-Public Use
  Company Number: 2006103282

PATIENT
  Age: 38 Year
  Sex: Female
  Weight: 72.5755 kg

DRUGS (11)
  1. ZOLOFT [Suspect]
     Indication: DEPRESSION
     Dosage: 150 MG (150 MG, 1 IN 1 D)
  2. LYRICA [Suspect]
     Indication: PAIN
     Dosage: 225 MG (75 MG, 3 IN 1 D)
  3. TOPROL-XL [Concomitant]
  4. MONTELUKAST [Concomitant]
  5. PROTONIX [Concomitant]
  6. ALBUTEROL [Concomitant]
  7. LASIX [Concomitant]
  8. IMITREX [Concomitant]
  9. ALBUTEROL SULFATE [Concomitant]
  10. CALCIUM GLUCONATE [Concomitant]
  11. VITAMINS [Concomitant]

REACTIONS (8)
  - ACTIVITIES OF DAILY LIVING IMPAIRED [None]
  - CONFUSIONAL STATE [None]
  - DEPRESSION [None]
  - DISTURBANCE IN ATTENTION [None]
  - DIZZINESS [None]
  - DRUG INTERACTION [None]
  - FALL [None]
  - IMPAIRED DRIVING ABILITY [None]
